FAERS Safety Report 9954823 (Version 1)
Quarter: 2014Q1

REPORT INFORMATION
  Report Type: Report from Study
  Country: US (occurrence: US)
  Receive Date: 20140304
  Receipt Date: 20140304
  Transmission Date: 20141002
  Serious: No
  Sender: FDA-Public Use
  Company Number: US-ABBVIE-13P-163-1084145-00

PATIENT
  Age: 39 Year
  Sex: Female

DRUGS (8)
  1. HUMIRA [Suspect]
     Indication: CROHN^S DISEASE
     Dates: start: 20121130
  2. RESTASIS [Concomitant]
     Indication: DRY EYE
     Dosage: DAILY
  3. NORTRIPTYLINE HCL [Concomitant]
     Indication: IRRITABLE BOWEL SYNDROME
     Dosage: AT BEDTIME
  4. HYDROCYNMINER [Concomitant]
     Indication: IRRITABLE BOWEL SYNDROME
  5. ALIGN PROBIOTIC [Concomitant]
     Indication: CROHN^S DISEASE
     Dosage: DAILY
  6. LO-OVRAL [Concomitant]
     Indication: CONTRACEPTION
     Dosage: DAILY
  7. B12 [Concomitant]
     Indication: VITAMIN SUPPLEMENTATION
     Dosage: DAILY
  8. VITAMIN D [Concomitant]
     Indication: VITAMIN SUPPLEMENTATION
     Dosage: 1.25 MG/50,000 IU

REACTIONS (2)
  - Injection site pain [Recovered/Resolved]
  - Injection site haemorrhage [Recovered/Resolved]
